FAERS Safety Report 12504237 (Version 1)
Quarter: 2016Q2

REPORT INFORMATION
  Report Type: Spontaneous
  Country: US (occurrence: None)
  Receive Date: 20160627
  Receipt Date: 20160627
  Transmission Date: 20160815
  Serious: No
  Sender: FDA-Public Use
  Company Number: None

PATIENT
  Age: 66 Year
  Sex: Female

DRUGS (3)
  1. NEXIUM [Concomitant]
     Active Substance: ESOMEPRAZOLE MAGNESIUM
  2. TRAMADOL. [Concomitant]
     Active Substance: TRAMADOL
  3. ESBRIET [Suspect]
     Active Substance: PIRFENIDONE
     Dosage: 3 TID
     Route: 048
     Dates: start: 20160426

REACTIONS (5)
  - Fatigue [None]
  - Alopecia [None]
  - Headache [None]
  - Vomiting [None]
  - Weight decreased [None]

NARRATIVE: CASE EVENT DATE: 20160624
